FAERS Safety Report 18028179 (Version 1)
Quarter: 2020Q3

REPORT INFORMATION
  Report Type: Spontaneous
  Country: US (occurrence: US)
  Receive Date: 20200715
  Receipt Date: 20200715
  Transmission Date: 20201103
  Serious: No
  Sender: FDA-Public Use
  Company Number: US-UNITED THERAPEUTICS-UNT-2020-010418

PATIENT
  Age: 50 Year
  Sex: Female

DRUGS (3)
  1. REMODULIN [Suspect]
     Active Substance: TREPROSTINIL
     Indication: PULMONARY ARTERIAL HYPERTENSION
     Dosage: 0.0157 ?G/KG, CONTINUING
     Route: 058
  2. REMODULIN [Suspect]
     Active Substance: TREPROSTINIL
     Dosage: 0.0157 ?G/KG, CONTINUING
     Route: 058
     Dates: start: 202007
  3. REMODULIN [Suspect]
     Active Substance: TREPROSTINIL
     Dosage: 0.0171 ?G/KG, CONTINUING
     Route: 058
     Dates: start: 20200708

REACTIONS (4)
  - Presyncope [Recovering/Resolving]
  - Dizziness [Recovering/Resolving]
  - Pain in extremity [Recovering/Resolving]
  - Headache [Recovering/Resolving]

NARRATIVE: CASE EVENT DATE: 20200709
